FAERS Safety Report 23860854 (Version 2)
Quarter: 2024Q2

REPORT INFORMATION
  Report Type: Other
  Country: US (occurrence: None)
  Receive Date: 20240516
  Receipt Date: 20240520
  Transmission Date: 20240716
  Serious: No
  Sender: FDA-Public Use
  Company Number: US-ROCHE-3562656

PATIENT
  Age: 49 Year
  Sex: Female

DRUGS (1)
  1. OCREVUS [Suspect]
     Active Substance: OCRELIZUMAB
     Indication: Relapsing multiple sclerosis
     Dosage: SINGLE VIAL?DOT: 03/01/2019, 4/11/2023, 10/11/2023, 11/10/2023
     Route: 065
     Dates: start: 20190918, end: 20200918

REACTIONS (1)
  - Fungal infection [Not Recovered/Not Resolved]
